FAERS Safety Report 4920905-2 (Version None)
Quarter: 2006Q1

REPORT INFORMATION
  Report Type: 
  Country: None (occurrence: None)
  Receive Date: 20060223
  Receipt Date: 20050422
  Transmission Date: 20060701
  Serious: No
  Sender: FDA-Public Use
  Company Number: US-MERCK-0504USA04430

PATIENT
  Age: 45 Year
  Sex: Male
  Weight: 73 kg

DRUGS (4)
  1. VIOXX [Suspect]
     Indication: NECK PAIN
     Route: 048
     Dates: start: 20030301, end: 20030501
  2. VIOXX [Suspect]
     Route: 048
     Dates: start: 20040101, end: 20040301
  3. VIOXX [Suspect]
     Indication: JOINT SPRAIN
     Route: 048
     Dates: start: 20030301, end: 20030501
  4. VIOXX [Suspect]
     Route: 048
     Dates: start: 20040101, end: 20040301

REACTIONS (2)
  - CHEST PAIN [None]
  - HYPERTENSION [None]
